FAERS Safety Report 20244545 (Version 1)
Quarter: 2021Q4

REPORT INFORMATION
  Report Type: Report from Study
  Country: US (occurrence: US)
  Receive Date: 20211229
  Receipt Date: 20211229
  Transmission Date: 20220303
  Serious: No
  Sender: FDA-Public Use
  Company Number: US-Ipsen Biopharmaceuticals, Inc.-2021-32899

PATIENT

DRUGS (1)
  1. DYSPORT [Suspect]
     Active Substance: ABOBOTULINUMTOXINA
     Indication: Torticollis
     Dosage: ANTEROCOLLIS - 650.00, RETROCOLLIS -  650.00, TORTICOLLIS -  650.00,LATEROCOLLIS -  650.00
     Route: 065

REACTIONS (2)
  - Muscle spasticity [Unknown]
  - Prescribed overdose [Unknown]
